FAERS Safety Report 5419277-9 (Version None)
Quarter: 2007Q3

REPORT INFORMATION
  Report Type: 
  Country: None (occurrence: None)
  Receive Date: 20070815
  Receipt Date: 20070806
  Transmission Date: 20080115
  Serious: Yes (Hospitalization)
  Sender: FDA-Public Use
  Company Number: 2007BI008146

PATIENT
  Age: 50 Year
  Sex: Female

DRUGS (8)
  1. AVONEX [Suspect]
     Indication: MULTIPLE SCLEROSIS
     Dosage: 30 UG; QW; IM
     Route: 030
     Dates: start: 20000801, end: 20030101
  2. AVONEX [Suspect]
     Indication: MULTIPLE SCLEROSIS
     Dosage: 30 UG; QW; IM
     Route: 030
     Dates: start: 20030101, end: 20051221
  3. AVONEX [Suspect]
     Indication: MULTIPLE SCLEROSIS
     Dosage: 30 UG; QW; IM
     Route: 030
     Dates: start: 20070401
  4. DIAZEPAM [Concomitant]
  5. CLONAZEPAM [Concomitant]
  6. NEURONTIN [Concomitant]
  7. FIORICET W/ CODEINE [Concomitant]
  8. TEMAZEPAM [Concomitant]

REACTIONS (16)
  - EXTRUSION OF DEVICE [None]
  - FALL [None]
  - FATIGUE [None]
  - FEELING ABNORMAL [None]
  - HAEMORRHAGE [None]
  - HEAD INJURY [None]
  - IATROGENIC INJURY [None]
  - JOINT DISLOCATION [None]
  - JOINT INJURY [None]
  - LOSS OF CONSCIOUSNESS [None]
  - LOWER LIMB FRACTURE [None]
  - MEDICAL DEVICE COMPLICATION [None]
  - MUSCULOSKELETAL DISORDER [None]
  - PAIN IN EXTREMITY [None]
  - TREATMENT FAILURE [None]
  - VASCULAR INJURY [None]
